FAERS Safety Report 6545667-7 (Version None)
Quarter: 2010Q1

REPORT INFORMATION
  Report Type: 
  Country: None (occurrence: None)
  Receive Date: 20100121
  Receipt Date: 20100108
  Transmission Date: 20100710
  Serious: Yes (Life-Threatening, Hospitalization, Other)
  Sender: FDA-Public Use
  Company Number: US-WATSON-2010-00365

PATIENT
  Age: 79 Year
  Sex: Male

DRUGS (2)
  1. SIMVASTATIN [Suspect]
     Indication: DRUG USE FOR UNKNOWN INDICATION
     Dosage: UNK
  2. FLUCONAZOLE [Suspect]
     Indication: DRUG USE FOR UNKNOWN INDICATION
     Dosage: UNK

REACTIONS (11)
  - BLOOD CREATINE PHOSPHOKINASE INCREASED [None]
  - DRUG INTERACTION [None]
  - DYSPHAGIA [None]
  - HEMIPARESIS [None]
  - MASTICATION DISORDER [None]
  - MYOGLOBINURIA [None]
  - NAUSEA [None]
  - RENAL FAILURE ACUTE [None]
  - RHABDOMYOLYSIS [None]
  - SPEECH DISORDER [None]
  - VOMITING [None]
